FAERS Safety Report 6086913-6 (Version None)
Quarter: 2009Q1

REPORT INFORMATION
  Report Type: 
  Country: None (occurrence: None)
  Receive Date: 20090223
  Receipt Date: 20090212
  Transmission Date: 20090719
  Serious: Yes (Death, Hospitalization)
  Sender: FDA-Public Use
  Company Number: US-ROCHE-600296

PATIENT
  Sex: Female
  Weight: 41.7 kg

DRUGS (2)
  1. CAPECITABINE [Suspect]
     Indication: COLORECTAL CANCER METASTATIC
     Dosage: IN TWO DIVIDED DOSES TWO WEEKS ON, 1 WEEK OFF
     Route: 048
     Dates: start: 20081021, end: 20081127
  2. OXALIPLATIN [Suspect]
     Indication: COLORECTAL CANCER METASTATIC
     Dosage: DAY 1 EVERY 3 WEEKS,
     Route: 065
     Dates: end: 20081112

REACTIONS (6)
  - CLOSTRIDIUM DIFFICILE COLITIS [None]
  - DECREASED APPETITE [None]
  - FAILURE TO THRIVE [None]
  - HEART RATE INCREASED [None]
  - HYPONATRAEMIA [None]
  - SMALL INTESTINAL OBSTRUCTION [None]
